FAERS Safety Report 10516839 (Version 1)
Quarter: 2014Q4

REPORT INFORMATION
  Report Type: Spontaneous
  Country: DE (occurrence: DE)
  Receive Date: 20141014
  Receipt Date: 20141014
  Transmission Date: 20150528
  Serious: Yes (Hospitalization)
  Sender: FDA-Public Use
  Company Number: DE-BRISTOL-MYERS SQUIBB COMPANY-21484373

PATIENT
  Age: 44 Year
  Sex: Male

DRUGS (3)
  1. ABILIFY [Suspect]
     Active Substance: ARIPIPRAZOLE
     Dosage: INITIATED WITH LOWER DOSE AND INCREASED OVER TIME TO 30 MG PER DAY
     Route: 065
  2. SEROQUEL [Concomitant]
     Active Substance: QUETIAPINE FUMARATE
  3. HALDOL [Concomitant]
     Active Substance: HALOPERIDOL

REACTIONS (3)
  - Off label use [Unknown]
  - Suicide attempt [Unknown]
  - Fracture [Unknown]
